FAERS Safety Report 8195533-9 (Version None)
Quarter: 2012Q1

REPORT INFORMATION
  Report Type: 
  Country: None (occurrence: None)
  Receive Date: 20120308
  Receipt Date: 20120306
  Transmission Date: 20120608
  Serious: Yes (Other)
  Sender: FDA-Public Use
  Company Number: PHHY2012DO019822

PATIENT
  Age: 71 Year
  Sex: Female

DRUGS (2)
  1. ZOLEDRONOC ACID [Suspect]
     Indication: OSTEOPOROSIS
     Dosage: 5 MG,/ HYDRATION WITH ISOTONIC SALINE SOLUTION
     Route: 042
     Dates: start: 20120306
  2. ANTIHYPERTENSIVES [Concomitant]

REACTIONS (2)
  - RASH ERYTHEMATOUS [None]
  - PYREXIA [None]
